FAERS Safety Report 6003666-8 (Version None)
Quarter: 2008Q4

REPORT INFORMATION
  Report Type: 
  Country: None (occurrence: None)
  Receive Date: 20081216
  Receipt Date: 20080624
  Transmission Date: 20090506
  Serious: No
  Sender: FDA-Public Use
  Company Number: US-AMGEN-KDL289704

PATIENT
  Sex: Male

DRUGS (7)
  1. ARANESP [Suspect]
     Indication: ANAEMIA
     Dates: start: 20080101
  2. AVANDIA [Concomitant]
  3. HYZAAR [Concomitant]
  4. UNSPECIFIED MEDICATION [Concomitant]
  5. ALTACE [Concomitant]
  6. CRESTOR [Concomitant]
  7. TRINSICON [Concomitant]

REACTIONS (2)
  - DRUG INEFFECTIVE [None]
  - FATIGUE [None]
